FAERS Safety Report 18491657 (Version 1)
Quarter: 2020Q4

REPORT INFORMATION
  Report Type: Spontaneous
  Country: SE (occurrence: SE)
  Receive Date: 20201111
  Receipt Date: 20201111
  Transmission Date: 20210114
  Serious: Yes (Other)
  Sender: FDA-Public Use
  Company Number: SE-ASTRAZENECA-2020SF44336

PATIENT
  Age: 76 Year
  Sex: Female

DRUGS (2)
  1. CRESTOR [Suspect]
     Active Substance: ROSUVASTATIN CALCIUM
     Route: 048
     Dates: start: 20200805, end: 20200826
  2. CRESTOR [Suspect]
     Active Substance: ROSUVASTATIN CALCIUM
     Route: 048
     Dates: start: 20200415, end: 20200804

REACTIONS (14)
  - Dyspnoea [Unknown]
  - Pulmonary oedema [Unknown]
  - Back pain [Unknown]
  - Chest discomfort [Unknown]
  - Anxiety [Unknown]
  - Mobility decreased [Unknown]
  - Musculoskeletal stiffness [Unknown]
  - Sleep disorder [Unknown]
  - Nausea [Unknown]
  - Asthenia [Unknown]
  - Arthralgia [Unknown]
  - Nightmare [Unknown]
  - Depressed mood [Unknown]
  - Insomnia [Unknown]

NARRATIVE: CASE EVENT DATE: 2020
